FAERS Safety Report 19613390 (Version 1)
Quarter: 2021Q3

REPORT INFORMATION
  Report Type: Spontaneous
  Country: US (occurrence: US)
  Receive Date: 20210726
  Receipt Date: 20210726
  Transmission Date: 20211014
  Serious: Yes (Life-Threatening, Hospitalization, Disabling)
  Sender: FDA-Public Use
  Company Number: None

PATIENT
  Age: 57 Year
  Sex: Female
  Weight: 90 kg

DRUGS (1)
  1. KEYTRUDA [Suspect]
     Active Substance: PEMBROLIZUMAB

REACTIONS (7)
  - Constipation [None]
  - Quality of life decreased [None]
  - Abdominal pain [None]
  - Swelling [None]
  - Vomiting [None]
  - Dysphagia [None]
  - Diarrhoea [None]

NARRATIVE: CASE EVENT DATE: 20190701
